FAERS Safety Report 10534566 (Version 2)
Quarter: 2014Q4

REPORT INFORMATION
  Report Type: Spontaneous
  Country: US (occurrence: US)
  Receive Date: 20141022
  Receipt Date: 20141117
  Transmission Date: 20150529
  Serious: Yes (Hospitalization, Other)
  Sender: FDA-Public Use
  Company Number: US-009507513-1410USA010550

PATIENT
  Age: 67 Year
  Sex: Male

DRUGS (6)
  1. JANUVIA [Suspect]
     Active Substance: SITAGLIPTIN PHOSPHATE
     Indication: TYPE 2 DIABETES MELLITUS
     Dosage: 100 MG, QD
     Route: 048
  2. SIMVASTATIN TABLETS, USP [Suspect]
     Active Substance: SIMVASTATIN
     Dosage: 40 MG, QD
     Route: 048
  3. METFORMIN [Suspect]
     Active Substance: METFORMIN HYDROCHLORIDE
     Dosage: 2000 MG, QD
  4. AVAPRO [Suspect]
     Active Substance: IRBESARTAN
     Dosage: 300 MG, QD
  5. ATENOLOL. [Suspect]
     Active Substance: ATENOLOL
     Dosage: 100 MG, QD
  6. ASPIRIN. [Suspect]
     Active Substance: ASPIRIN
     Dosage: 81 MG, QD
     Route: 048

REACTIONS (1)
  - Pancreatitis [Unknown]
